FAERS Safety Report 17675638 (Version 1)
Quarter: 2020Q2

REPORT INFORMATION
  Report Type: Spontaneous
  Country: US (occurrence: US)
  Receive Date: 20200415
  Receipt Date: 20200415
  Transmission Date: 20200714
  Serious: No
  Sender: FDA-Public Use
  Company Number: None

PATIENT
  Age: 69 Year
  Sex: Male

DRUGS (1)
  1. SULFAMETHOXAZOLE/TRIMETHOPRIM (SULFAMETHOXAZOLE 800MG/TRIMETHOPRIM 160 [Suspect]
     Active Substance: SULFAMETHOXAZOLE\TRIMETHOPRIM
     Indication: URINARY TRACT INFECTION
     Dosage: ?          OTHER DOSE:1 TAB;?
     Route: 048
     Dates: start: 20181224, end: 20190101

REACTIONS (16)
  - Malaise [None]
  - Upper respiratory tract infection [None]
  - Hepatocellular injury [None]
  - Pulmonary congestion [None]
  - Renal impairment [None]
  - Cough [None]
  - Myalgia [None]
  - Hepatotoxicity [None]
  - Cholestatic liver injury [None]
  - Chills [None]
  - Headache [None]
  - Tachycardia [None]
  - Influenza like illness [None]
  - Pyrexia [None]
  - Bundle branch block right [None]
  - Lung infiltration [None]

NARRATIVE: CASE EVENT DATE: 20190102
